FAERS Safety Report 16965181 (Version 1)
Quarter: 2019Q4

REPORT INFORMATION
  Report Type: Spontaneous
  Country: US (occurrence: US)
  Receive Date: 20191028
  Receipt Date: 20191028
  Transmission Date: 20200122
  Serious: Yes (Other)
  Sender: FDA-Public Use
  Company Number: US-SA-2019SA297181

PATIENT
  Sex: Female

DRUGS (1)
  1. FABRAZYME [Suspect]
     Active Substance: AGALSIDASE BETA
     Indication: FABRY^S DISEASE
     Dosage: UNK, QOW
     Route: 041

REACTIONS (6)
  - Chronic kidney disease [Unknown]
  - Paraesthesia [Unknown]
  - Migraine [Unknown]
  - Limb discomfort [Unknown]
  - Peripheral swelling [Unknown]
  - Swelling face [Unknown]
